FAERS Safety Report 24684120 (Version 1)
Quarter: 2024Q4

REPORT INFORMATION
  Report Type: Spontaneous
  Country: CN (occurrence: CN)
  Receive Date: 20241202
  Receipt Date: 20241202
  Transmission Date: 20250114
  Serious: Yes (Hospitalization)
  Sender: Kenvue
  Company Number: CN-KENVUE-20241106410

PATIENT

DRUGS (4)
  1. CHILDRENS MOTRIN [Suspect]
     Active Substance: IBUPROFEN
     Indication: Pyrexia
     Dosage: 6 MILLILITER, SOS (AS NEEDED)
     Route: 048
     Dates: start: 20241110, end: 20241111
  2. CHILDRENS MOTRIN [Suspect]
     Active Substance: IBUPROFEN
     Indication: Upper respiratory tract infection
  3. ACETAMINOPHEN\CHLORPHENIRAMINE MALEATE\PSEUDOEPHEDRINE HYDROCHLORIDE [Suspect]
     Active Substance: ACETAMINOPHEN\CHLORPHENIRAMINE MALEATE\PSEUDOEPHEDRINE HYDROCHLORIDE
     Indication: Pyrexia
     Dosage: 5 MILLILITER, THRICE A DAY
     Route: 048
     Dates: start: 20241110, end: 20241111
  4. ACETAMINOPHEN\CHLORPHENIRAMINE MALEATE\PSEUDOEPHEDRINE HYDROCHLORIDE [Suspect]
     Active Substance: ACETAMINOPHEN\CHLORPHENIRAMINE MALEATE\PSEUDOEPHEDRINE HYDROCHLORIDE
     Indication: Upper respiratory tract infection

REACTIONS (2)
  - Off label use [Unknown]
  - Drug eruption [Recovering/Resolving]

NARRATIVE: CASE EVENT DATE: 20241110
